FAERS Safety Report 21075448 (Version 4)
Quarter: 2023Q1

REPORT INFORMATION
  Report Type: Spontaneous
  Country: PL (occurrence: PL)
  Receive Date: 20220713
  Receipt Date: 20230202
  Transmission Date: 20230418
  Serious: Yes (Hospitalization, Other)
  Sender: FDA-Public Use
  Company Number: PL-PFIZER INC-202200925663

PATIENT
  Age: 78 Year
  Sex: Female

DRUGS (14)
  1. AMLODIPINE BESYLATE [Interacting]
     Active Substance: AMLODIPINE BESYLATE
     Indication: Cardiac failure
     Dosage: 10 MG, 1X/DAY
     Route: 065
  2. AMLODIPINE BESYLATE [Interacting]
     Active Substance: AMLODIPINE BESYLATE
     Indication: Hypertension
  3. ATORVASTATIN CALCIUM [Interacting]
     Active Substance: ATORVASTATIN CALCIUM
     Dosage: 10 MG, PER DAY
     Route: 065
  4. CLARITHROMYCIN [Interacting]
     Active Substance: CLARITHROMYCIN
     Indication: Bronchitis
     Dosage: 500 MG, 2X/DAY (12 H)
     Route: 065
  5. ACETAMINOPHEN [Suspect]
     Active Substance: ACETAMINOPHEN
     Indication: Bronchitis
     Dosage: UNK
     Route: 065
  6. ACETAMINOPHEN [Suspect]
     Active Substance: ACETAMINOPHEN
     Indication: Pyrexia
  7. ACETAMINOPHEN [Suspect]
     Active Substance: ACETAMINOPHEN
     Indication: Antipyresis
  8. METOPROLOL [Suspect]
     Active Substance: METOPROLOL
     Indication: Cardiac failure
     Dosage: 12.5 MG, 1X/DAY
     Route: 065
  9. METOPROLOL [Suspect]
     Active Substance: METOPROLOL
     Indication: Hypertension
  10. ZOFENOPRIL [Suspect]
     Active Substance: ZOFENOPRIL
     Indication: Cardiac failure
     Dosage: 7.5 MG, 1X/DAY
     Route: 065
  11. ZOFENOPRIL [Suspect]
     Active Substance: ZOFENOPRIL
     Indication: Hypertension
  12. TORSEMIDE [Suspect]
     Active Substance: TORSEMIDE
     Indication: Cardiac failure
     Dosage: 5 MG, 1X/DAY
     Route: 065
  13. TORSEMIDE [Suspect]
     Active Substance: TORSEMIDE
     Indication: Hypertension
  14. ERDOSTEINE [Suspect]
     Active Substance: ERDOSTEINE
     Indication: Bronchitis
     Dosage: 300 MG, 2X/DAY
     Route: 065

REACTIONS (5)
  - Hyponatraemia [Unknown]
  - Drug interaction [Unknown]
  - Oedema peripheral [Unknown]
  - Bronchitis [Recovering/Resolving]
  - Thirst [Unknown]
